FAERS Safety Report 6744204-1 (Version None)
Quarter: 2010Q2

REPORT INFORMATION
  Report Type: 
  Country: None (occurrence: None)
  Receive Date: 20100527
  Receipt Date: 20100526
  Transmission Date: 20101027
  Serious: Yes (Death)
  Sender: FDA-Public Use
  Company Number: GXKR2010DE01570

PATIENT
  Sex: Male
  Weight: 81 kg

DRUGS (5)
  1. AZITHROMYCIN SANDOZ (NGX) [Suspect]
     Indication: RESPIRATORY TRACT INFECTION
     Dosage: 500 MG, QD
     Route: 048
     Dates: start: 20091105, end: 20091107
  2. PREDNISOLONE [Concomitant]
  3. FORMOTOP [Concomitant]
  4. NOVOPULMON [Concomitant]
  5. BEROTEC [Concomitant]

REACTIONS (5)
  - ASTHMA [None]
  - CYANOSIS [None]
  - DYSPHAGIA [None]
  - DYSPNOEA [None]
  - LOSS OF CONSCIOUSNESS [None]
